FAERS Safety Report 24267177 (Version 2)
Quarter: 2024Q3

REPORT INFORMATION
  Report Type: Spontaneous
  Country: US (occurrence: US)
  Receive Date: 20240830
  Receipt Date: 20240830
  Transmission Date: 20241016
  Serious: Yes (Other)
  Sender: ROCHE
  Company Number: US-ROCHE-10000068209

PATIENT
  Sex: Male

DRUGS (2)
  1. AVASTIN [Suspect]
     Active Substance: BEVACIZUMAB
     Indication: Neovascular age-related macular degeneration
     Dosage: INJECTION
     Route: 050
  2. EYLEA [Concomitant]
     Active Substance: AFLIBERCEPT

REACTIONS (2)
  - Off label use [Unknown]
  - Cataract [Unknown]
